FAERS Safety Report 22683188 (Version 2)
Quarter: 2024Q1

REPORT INFORMATION
  Report Type: Spontaneous
  Country: DE (occurrence: DE)
  Receive Date: 20230707
  Receipt Date: 20240125
  Transmission Date: 20240409
  Serious: Yes (Other)
  Sender: FDA-Public Use
  Company Number: None

PATIENT
  Age: 36 Year
  Sex: Female
  Weight: 85 kg

DRUGS (1)
  1. CYTOTEC [Suspect]
     Active Substance: MISOPROSTOL
     Indication: Labour induction
     Dosage: TWO OR FOURFOLD INCREASED DOSE / 50 AND 10009:40: 1/4 TABLET - 50 MCG 16:20: 1/4 TSP. - 50 MCG
     Route: 048
     Dates: start: 20200212, end: 20200212

REACTIONS (7)
  - Haemorrhage [Recovered/Resolved with Sequelae]
  - Maternal exposure during pregnancy [Unknown]
  - Off label use [Unknown]
  - Illness [Recovered/Resolved with Sequelae]
  - Skin ulcer [Recovered/Resolved with Sequelae]
  - Gastrointestinal disorder [Recovered/Resolved with Sequelae]
  - Drug intolerance [Recovered/Resolved with Sequelae]

NARRATIVE: CASE EVENT DATE: 20200212
